FAERS Safety Report 9153139 (Version 4)
Quarter: 2013Q2

REPORT INFORMATION
  Report Type: Spontaneous
  Country: US (occurrence: US)
  Receive Date: 20130311
  Receipt Date: 20130419
  Transmission Date: 20140414
  Serious: Yes (Other)
  Sender: FDA-Public Use
  Company Number: US-009507513-1303USA002890

PATIENT
  Age: 38 Year
  Sex: Female

DRUGS (3)
  1. PEG-INTRON [Suspect]
     Indication: HEPATITIS C
     Dosage: UNK
     Dates: start: 20130304, end: 20130315
  2. REBETOL [Suspect]
     Indication: HEPATITIS C
     Dosage: UNK
     Dates: start: 20130302, end: 20130315
  3. AMITRIPTYLINE HYDROCHLORIDE [Concomitant]
     Dosage: UNK
     Dates: start: 201303

REACTIONS (35)
  - Aphasia [Unknown]
  - Hemiparesis [Unknown]
  - Paranoia [Unknown]
  - Convulsion [Unknown]
  - Bone pain [Unknown]
  - Respiratory disorder [Unknown]
  - Lip dry [Unknown]
  - Gastrointestinal disorder [Unknown]
  - Abnormal behaviour [Unknown]
  - Mood swings [Unknown]
  - Mouth ulceration [Unknown]
  - Confusional state [Unknown]
  - Hypersensitivity [Unknown]
  - Ear pain [Unknown]
  - Oropharyngeal pain [Unknown]
  - Dysgeusia [Unknown]
  - Dry mouth [Unknown]
  - Weight decreased [Unknown]
  - Chills [Unknown]
  - Influenza like illness [Unknown]
  - Dehydration [Unknown]
  - Abdominal pain [Unknown]
  - Headache [Unknown]
  - Injection site reaction [Unknown]
  - Chills [Unknown]
  - Anxiety [Unknown]
  - Abdominal pain [Unknown]
  - Leukopenia [Unknown]
  - Headache [Unknown]
  - Agitation [Unknown]
  - Disturbance in attention [Unknown]
  - Abdominal pain [Unknown]
  - Diarrhoea [Unknown]
  - Weight decreased [Unknown]
  - White blood cell count decreased [Unknown]
